FAERS Safety Report 19153717 (Version 3)
Quarter: 2021Q3

REPORT INFORMATION
  Report Type: Spontaneous
  Country: CA (occurrence: CA)
  Receive Date: 20210419
  Receipt Date: 20210708
  Transmission Date: 20211014
  Serious: Yes (Life-Threatening, Hospitalization)
  Sender: FDA-Public Use
  Company Number: CA-JNJFOC-20210423845

PATIENT
  Age: 78 Year
  Sex: Female
  Weight: 41 kg

DRUGS (21)
  1. DARZALEX [Suspect]
     Active Substance: DARATUMUMAB
     Indication: PLASMA CELL MYELOMA
     Dosage: MG
     Route: 042
     Dates: start: 20210330, end: 20210330
  2. DEXAMETHASONE. [Suspect]
     Active Substance: DEXAMETHASONE
     Indication: PLASMA CELL MYELOMA
     Dosage: 20 MG
     Route: 048
     Dates: start: 20210330, end: 20210330
  3. TIMOLOL. [Concomitant]
     Active Substance: TIMOLOL
     Indication: GLAUCOMA
     Dosage: 0.1 ML X 1 X 1 DAYS
     Route: 031
     Dates: start: 202006
  4. MAGNESIUM [Concomitant]
     Active Substance: MAGNESIUM
     Indication: SUPPLEMENTATION THERAPY
     Dosage: 100 MG X 1 X 1 DAYS
     Route: 048
     Dates: start: 20200130
  5. FUROSEMIDE. [Concomitant]
     Active Substance: FUROSEMIDE
     Indication: HYPERTENSION
     Dosage: 20 MG X 1 X 1 DAYS
     Route: 048
     Dates: start: 202005
  6. C [Concomitant]
     Indication: SUPPLEMENTATION THERAPY
     Dosage: 500 MG X 1 X 1 DAYS
     Route: 048
     Dates: start: 201811
  7. HYDROMORPH CONTIN [Concomitant]
     Active Substance: HYDROMORPHONE
     Indication: ARTHRALGIA
  8. SENOKOT [Concomitant]
     Active Substance: SENNOSIDES
     Indication: CONSTIPATION
     Dosage: 2 TABLET X 2 X 1 DAYS
     Route: 048
     Dates: start: 201712
  9. ZOPICLONE [Concomitant]
     Active Substance: ZOPICLONE
     Indication: INSOMNIA
     Dosage: 7.5 MG
     Route: 048
     Dates: start: 2019
  10. DEXAMETHASONE. [Suspect]
     Active Substance: DEXAMETHASONE
     Route: 048
     Dates: start: 20210414, end: 20210414
  11. HYDROMORPH CONTIN [Concomitant]
     Active Substance: HYDROMORPHONE
     Indication: BACK PAIN
     Dosage: 12 MG X 3 X 1 DAYS
     Route: 048
     Dates: start: 201712
  12. GRASTOFIL [Concomitant]
     Active Substance: FILGRASTIM
     Indication: NEUTROPENIA
     Route: 065
  13. ASA [Concomitant]
     Active Substance: ASPIRIN
     Indication: PROPHYLAXIS
     Dosage: 81 MG X 1 X 1 DAYS
     Route: 048
     Dates: start: 202001
  14. DOCUSATE [Concomitant]
     Active Substance: DOCUSATE
     Indication: CONSTIPATION
     Dosage: 200 MG X 2 X 1 DAYS
     Route: 048
     Dates: start: 201712
  15. CYANOCOBALAMIN. [Concomitant]
     Active Substance: CYANOCOBALAMIN
     Indication: SUPPLEMENTATION THERAPY
     Dosage: 1000 IU X 1 X 1 DAYS
     Route: 048
     Dates: start: 201901
  16. DEXAMETHASONE. [Suspect]
     Active Substance: DEXAMETHASONE
     Route: 048
     Dates: start: 20210407, end: 20210407
  17. DEXAMETHASONE. [Suspect]
     Active Substance: DEXAMETHASONE
     Route: 048
     Dates: start: 20210421, end: 20210421
  18. ACYCLOVIR [ACICLOVIR] [Concomitant]
     Active Substance: ACYCLOVIR
     Indication: PROPHYLAXIS
     Dosage: 400 MG X 2 X 1 DAYS
     Route: 048
     Dates: start: 201710
  19. GABAPENTIN. [Concomitant]
     Active Substance: GABAPENTIN
     Indication: MUSCLE SPASMS
     Dosage: 600 MG X 3 X 1 DAYS
     Route: 048
     Dates: start: 202009
  20. PANTOP [Concomitant]
     Active Substance: PANTOPRAZOLE SODIUM
     Indication: PROPHYLAXIS
     Dosage: 40 MG X 1 X 1 DAYS
     Route: 048
     Dates: start: 202001
  21. D [Concomitant]
     Indication: SUPPLEMENTATION THERAPY
     Dosage: 1000 IU X 1 X 1 DAYS
     Route: 048
     Dates: start: 201405

REACTIONS (4)
  - Pelvic fracture [Unknown]
  - Fall [Unknown]
  - Hypercalcaemia [Recovered/Resolved]
  - Arthralgia [Recovered/Resolved]

NARRATIVE: CASE EVENT DATE: 20210405
